FAERS Safety Report 8223177-9 (Version None)
Quarter: 2012Q1

REPORT INFORMATION
  Report Type: 
  Country: None (occurrence: None)
  Receive Date: 20120321
  Receipt Date: 20120312
  Transmission Date: 20120608
  Serious: Yes (Hospitalization)
  Sender: FDA-Public Use
  Company Number: US-AMGEN-USASP2012016087

PATIENT
  Age: 50 Year
  Sex: Male

DRUGS (4)
  1. REMICADE [Concomitant]
     Dosage: UNK
  2. ENBREL [Suspect]
     Indication: RHEUMATOID ARTHRITIS
     Dosage: 50 MG, QWK
     Dates: start: 20040101
  3. ORENCIA [Concomitant]
     Dosage: UNK
  4. HUMIRA [Concomitant]
     Dosage: UNK

REACTIONS (8)
  - INJECTION SITE PAIN [None]
  - DRUG INEFFECTIVE [None]
  - INJECTION SITE URTICARIA [None]
  - RHEUMATOID ARTHRITIS [None]
  - FOOT DEFORMITY [None]
  - HIP ARTHROPLASTY [None]
  - DEVICE FAILURE [None]
  - INTERVERTEBRAL DISC DISORDER [None]
